FAERS Safety Report 13246770 (Version 1)
Quarter: 2017Q1

REPORT INFORMATION
  Report Type: Spontaneous
  Country: US (occurrence: US)
  Receive Date: 20170217
  Receipt Date: 20170217
  Transmission Date: 20170428
  Serious: No
  Sender: FDA-Public Use
  Company Number: US-HORIZON-RAV-0053-2017

PATIENT
  Age: 31 Year
  Sex: Male
  Weight: 162 kg

DRUGS (4)
  1. CYCLINEX [Concomitant]
  2. PRO-PHREE [Concomitant]
  3. RAVICTI [Suspect]
     Active Substance: GLYCEROL PHENYLBUTYRATE
     Indication: ORNITHINE TRANSCARBAMOYLASE DEFICIENCY
     Dosage: 5.8 ML 2 TIMES A DAY INSTEAD OF 3 TIMES A DAY
  4. MULTIVITAMIN WITH IRON [Concomitant]
     Active Substance: IRON\VITAMINS
     Dosage: DAILY

REACTIONS (4)
  - Weight decreased [Unknown]
  - Nasopharyngitis [Recovered/Resolved]
  - Amino acid level increased [Unknown]
  - Intentional product misuse [Unknown]
